FAERS Safety Report 8462590-1 (Version None)
Quarter: 2012Q2

REPORT INFORMATION
  Report Type: 
  Country: None (occurrence: None)
  Receive Date: 20120625
  Receipt Date: 20120504
  Transmission Date: 20120825
  Serious: No
  Sender: FDA-Public Use
  Company Number: US-BAUSCH-2012BL002009

PATIENT
  Age: 30 Year
  Sex: Female

DRUGS (11)
  1. BESIVANCE [Suspect]
     Dates: start: 20120119
  2. PRED FORTE [Concomitant]
     Indication: PHOTOREFRACTIVE KERATECTOMY
     Route: 047
     Dates: start: 20110119, end: 20110119
  3. BESIVANCE [Suspect]
     Dates: start: 20120119
  4. BUPRENORPHINE [Concomitant]
     Route: 060
  5. BESIVANCE [Suspect]
     Indication: OFF LABEL USE
     Route: 047
     Dates: start: 20120119, end: 20120119
  6. BROMFENAC [Concomitant]
     Indication: PHOTOREFRACTIVE KERATECTOMY
     Route: 047
     Dates: start: 20110119, end: 20110119
  7. PRED FORTE [Concomitant]
     Indication: POSTOPERATIVE CARE
     Route: 047
     Dates: start: 20120119
  8. BROMFENAC [Concomitant]
     Indication: POSTOPERATIVE CARE
     Route: 047
     Dates: start: 20110119
  9. BESIVANCE [Suspect]
     Indication: POSTOPERATIVE CARE
     Route: 047
     Dates: start: 20120119, end: 20120119
  10. ORTHO TRI-CYCLEN [Concomitant]
     Route: 048
  11. DIOVAN [Concomitant]
     Route: 048

REACTIONS (2)
  - IMPAIRED HEALING [None]
  - CORNEAL DISORDER [None]
